FAERS Safety Report 6203736-5 (Version None)
Quarter: 2009Q2

REPORT INFORMATION
  Report Type: 
  Country: None (occurrence: None)
  Receive Date: 20090526
  Receipt Date: 20090526
  Transmission Date: 20091009
  Serious: Yes (Disabling)
  Sender: FDA-Public Use
  Company Number: None

PATIENT
  Age: 23 Year
  Sex: Male

DRUGS (2)
  1. VANCOMYCIN [Suspect]
     Indication: PYREXIA
     Dosage: 1 GM Q12H IV (1 DOSE)
     Route: 042
     Dates: start: 20081227, end: 20081227
  2. VANCOMYCIN [Suspect]
     Indication: RESPIRATORY FAILURE
     Dosage: 1 GM Q12H IV (1 DOSE)
     Route: 042
     Dates: start: 20081227, end: 20081227

REACTIONS (5)
  - FLUSHING [None]
  - INFUSION RELATED REACTION [None]
  - PYREXIA [None]
  - RASH [None]
  - RED MAN SYNDROME [None]
